FAERS Safety Report 24448623 (Version 3)
Quarter: 2024Q4

REPORT INFORMATION
  Report Type: Spontaneous
  Country: JP (occurrence: JP)
  Receive Date: 20241017
  Receipt Date: 20241104
  Transmission Date: 20250115
  Serious: Yes (Death, Other)
  Sender: NOVARTIS
  Company Number: JP-002147023-NVSJ2024JP012271

PATIENT
  Age: 71 Year
  Sex: Male

DRUGS (1)
  1. ASCIMINIB [Suspect]
     Active Substance: ASCIMINIB
     Indication: Chronic myeloid leukaemia
     Dosage: 40 MG
     Route: 065
     Dates: start: 202307

REACTIONS (6)
  - Malignant neoplasm progression [Fatal]
  - Chloroma [Fatal]
  - Pelvic pain [Fatal]
  - Pyrexia [Fatal]
  - Chronic myeloid leukaemia transformation [Unknown]
  - Gait disturbance [Unknown]

NARRATIVE: CASE EVENT DATE: 20230801
